FAERS Safety Report 5540804-5 (Version None)
Quarter: 2007Q4

REPORT INFORMATION
  Report Type: 
  Country: None (occurrence: None)
  Receive Date: 20071129
  Receipt Date: 20070808
  Transmission Date: 20080405
  Serious: Yes (Other)
  Sender: FDA-Public Use
  Company Number: US200708002344

PATIENT
  Age: 38 Year
  Sex: Female

DRUGS (3)
  1. ZYPREXA ZYDIS [Suspect]
     Dosage: 10 MG, 3/D,
     Dates: start: 20070804, end: 20070804
  2. VALIUM [Concomitant]
  3. METHAMPHETAMINE HYDROCHLORIDE [Concomitant]

REACTIONS (2)
  - CEREBROVASCULAR ACCIDENT [None]
  - OVERDOSE [None]
